FAERS Safety Report 7126456-1 (Version None)
Quarter: 2010Q4

REPORT INFORMATION
  Report Type: 
  Country: None (occurrence: None)
  Receive Date: 20101115
  Receipt Date: 20101109
  Transmission Date: 20110411
  Serious: Yes (Hospitalization)
  Sender: FDA-Public Use
  Company Number: 2009AC000421

PATIENT
  Age: 52 Year
  Sex: Female

DRUGS (26)
  1. DIGOXIN [Suspect]
     Dosage: 0.25 MG;QD;PO
     Dates: start: 20020402, end: 20080414
  2. DIGOXIN [Suspect]
     Dosage: 0.125 MG;QOD;PO
     Route: 048
     Dates: start: 20080528, end: 20080630
  3. NOVOLIN 70/30 [Concomitant]
  4. PREDNISONE [Concomitant]
  5. COMBIVENT [Concomitant]
  6. GLUCOTROL [Concomitant]
  7. FEOSOL [Concomitant]
  8. CIPRO [Concomitant]
  9. HUMULIN R [Concomitant]
  10. ASPIRIN [Concomitant]
  11. LOPRESSOR [Concomitant]
  12. LANTUS [Concomitant]
  13. LEVOTHYROXINE SODIUM [Concomitant]
  14. LORTAB [Concomitant]
  15. METFORMTN [Concomitant]
  16. ZOCOR [Concomitant]
  17. CLARITIN [Concomitant]
  18. METOPROLOL [Concomitant]
  19. DIOVAN [Concomitant]
  20. BUMEX [Concomitant]
  21. PULMICORT [Concomitant]
  22. ALTACE [Concomitant]
  23. PREVACID [Concomitant]
  24. NIASPAN [Concomitant]
  25. LOPID [Concomitant]
  26. LEVAQUIN [Concomitant]

REACTIONS (37)
  - ANXIETY [None]
  - BLOOD POTASSIUM INCREASED [None]
  - BLOOD TRIGLYCERIDES INCREASED [None]
  - CARDIAC FAILURE CONGESTIVE [None]
  - CARDIOACTIVE DRUG LEVEL INCREASED [None]
  - CHEST PAIN [None]
  - DEHYDRATION [None]
  - DEPRESSION [None]
  - DIABETES MELLITUS INADEQUATE CONTROL [None]
  - DIABETIC NEUROPATHY [None]
  - DIABETIC RETINOPATHY [None]
  - DIARRHOEA [None]
  - DIZZINESS [None]
  - ECONOMIC PROBLEM [None]
  - ENDOTRACHEAL INTUBATION COMPLICATION [None]
  - FATIGUE [None]
  - FLANK PAIN [None]
  - GALLBLADDER NON-FUNCTIONING [None]
  - GASTROOESOPHAGEAL REFLUX DISEASE [None]
  - HAEMATOMA [None]
  - HYPOTHYROIDISM [None]
  - IMPAIRED WORK ABILITY [None]
  - LARYNGEAL STENOSIS [None]
  - MULTIPLE INJURIES [None]
  - NAUSEA [None]
  - NEPHROLITHIASIS [None]
  - OCCULT BLOOD POSITIVE [None]
  - PLEURAL EFFUSION [None]
  - POSTOPERATIVE THORACIC PROCEDURE COMPLICATION [None]
  - PRODUCT QUALITY ISSUE [None]
  - PYELONEPHRITIS ACUTE [None]
  - RENAL FAILURE ACUTE [None]
  - STAPHYLOCOCCAL MEDIASTINITIS [None]
  - TREATMENT NONCOMPLIANCE [None]
  - URINARY TRACT INFECTION [None]
  - UROSEPSIS [None]
  - VOMITING [None]
